FAERS Safety Report 7656885-9 (Version None)
Quarter: 2011Q3

REPORT INFORMATION
  Report Type: 
  Country: None (occurrence: None)
  Receive Date: 20110729
  Receipt Date: 20110719
  Transmission Date: 20111222
  Serious: Yes (Other)
  Sender: FDA-Public Use
  Company Number: FK201101399

PATIENT
  Age: 54 Year
  Sex: Female
  Weight: 65 kg

DRUGS (8)
  1. DOXYCYCLINE [Concomitant]
  2. DIVALPROEX SODIUM [Suspect]
     Indication: CONVULSION
     Dosage: 750 MG, QDAY AT NIGHT, ORAL; 250 MG, Q8HOURS SYRUP, OROPHARINGEAL
     Route: 049
  3. ALBUTEROL SULFATE AND IPRATROPIUM BROMIDE [Concomitant]
  4. VALPROATE SODIUM [Suspect]
     Indication: CONVULSION
     Dosage: SEE IMAGE
     Route: 040
  5. VALPROATE SODIUM [Suspect]
     Dosage: 250 MG, Q 8 HOURS, NASOGASTRIC TUBE
  6. CLINDAMYCIN [Concomitant]
  7. DORIPENEM (DORIPENEM) [Suspect]
     Indication: PNEUMONIA ASPIRATION
     Dosage: 500 MG, Q 8 H, INTRAVENOUS (NOT OTHERWISE SPECIFIED)
     Route: 042
  8. METHYLPREDNISOLONE [Concomitant]

REACTIONS (6)
  - CHRONIC OBSTRUCTIVE PULMONARY DISEASE [None]
  - CONDITION AGGRAVATED [None]
  - PNEUMONIA ASPIRATION [None]
  - DRUG INTERACTION [None]
  - DRUG LEVEL DECREASED [None]
  - CONVULSION [None]
